FAERS Safety Report 19587728 (Version 2)
Quarter: 2021Q3

REPORT INFORMATION
  Report Type: Spontaneous
  Country: CA (occurrence: CA)
  Receive Date: 20210721
  Receipt Date: 20210907
  Transmission Date: 20211014
  Serious: Yes (Death, Other)
  Sender: FDA-Public Use
  Company Number: CA-HLS-202108043

PATIENT
  Age: 55 Year
  Sex: Male

DRUGS (1)
  1. CLOZAPINE. [Suspect]
     Active Substance: CLOZAPINE
     Indication: SCHIZOAFFECTIVE DISORDER
     Route: 065

REACTIONS (5)
  - Death [Fatal]
  - Arteriosclerosis [Fatal]
  - Vascular dementia [Fatal]
  - General physical health deterioration [Fatal]
  - Pneumonia aspiration [Fatal]
